FAERS Safety Report 9306918 (Version 1)
Quarter: 2013Q1

REPORT INFORMATION
  Report Type: Spontaneous
  Country: ES (occurrence: None)
  Receive Date: 20130215
  Receipt Date: 20130215
  Transmission Date: 20140127
  Serious: Yes (Other)
  Sender: FDA-Public Use
  Company Number: 218638

PATIENT
  Age: 46 Year
  Sex: Female
  Weight: 67 kg

DRUGS (3)
  1. DAIVOBET GEL (DAIVOBET /01643401/) (GEL) [Suspect]
     Indication: PSORIASIS
     Dosage: VERY LITTLE AMOUNT IN EACH PLAQUE OF PSORIASIS (ONCE IN 3-4 DAYS (9 DAYS)), TOPICAL
     Route: 061
     Dates: start: 201204, end: 201205
  2. METHOTREXATE (METHOTREXATE) [Concomitant]
  3. LEDERFOLIN 15 MG COMPRIMIDOS, 10 COMPRIMIDOS (CALCIUM FOLINATE) (TABLET) [Concomitant]

REACTIONS (1)
  - Application site discolouration [None]
